FAERS Safety Report 4283003-X (Version None)
Quarter: 2004Q1

REPORT INFORMATION
  Report Type: 
  Country: None (occurrence: None)
  Receive Date: 20040129
  Receipt Date: 20040114
  Transmission Date: 20041129
  Serious: Yes (Hospitalization)
  Sender: FDA-Public Use
  Company Number: ZANA001126

PATIENT
  Age: 54 Year
  Sex: Male

DRUGS (11)
  1. ZANAFLEX [Suspect]
     Indication: MUSCLE SPASTICITY
     Dosage: ORAL
     Route: 048
  2. BACLOFEN (BACLOFEN0 [Concomitant]
  3. SENNA CONCENTRATE (SENNA CONCENTRATE) [Concomitant]
  4. GABAPENTIN [Concomitant]
  5. CALCIUM CARBONATE (CALCIUM CARBONATE) [Concomitant]
  6. GLYBURIDE [Concomitant]
  7. FLUOXETINE [Concomitant]
  8. LOVASTATIN [Concomitant]
  9. ASPIRIN [Concomitant]
  10. ASCORBIC ACID [Concomitant]
  11. MULTIVITAMIN [Concomitant]

REACTIONS (2)
  - HYPERREFLEXIA [None]
  - LABILE BLOOD PRESSURE [None]
